FAERS Safety Report 5577554-5 (Version None)
Quarter: 2007Q4

REPORT INFORMATION
  Report Type: 
  Country: None (occurrence: None)
  Receive Date: 20071228
  Receipt Date: 20071217
  Transmission Date: 20080405
  Serious: Yes (Hospitalization)
  Sender: FDA-Public Use
  Company Number: TR-ELI_LILLY_AND_COMPANY-TR200712004843

PATIENT
  Sex: Female
  Weight: 48 kg

DRUGS (1)
  1. HUMALOG MIX 75/25 [Suspect]
     Dosage: UNK, 3/D
     Route: 058

REACTIONS (2)
  - ARM AMPUTATION [None]
  - RENAL DISORDER [None]
